FAERS Safety Report 24072603 (Version 1)
Quarter: 2024Q3

REPORT INFORMATION
  Report Type: Report from Study
  Country: US (occurrence: None)
  Receive Date: 20240710
  Receipt Date: 20240710
  Transmission Date: 20241017
  Serious: Yes (Other)
  Sender: ASTRAZENECA
  Company Number: 2024A153586

PATIENT
  Sex: Male
  Weight: 61.2 kg

DRUGS (6)
  1. TAGRISSO [Suspect]
     Active Substance: OSIMERTINIB
     Indication: Lung neoplasm malignant
     Route: 048
     Dates: start: 20230101
  2. ALLOPURINOL [Concomitant]
     Active Substance: ALLOPURINOL
  3. MINERALS\VITAMINS [Concomitant]
     Active Substance: MINERALS\VITAMINS
  4. DOXYCYCLINE HYCLATE [Concomitant]
     Active Substance: DOXYCYCLINE HYCLATE
  5. DOCUSATE SODIUM [Concomitant]
     Active Substance: DOCUSATE SODIUM
  6. METOPROLOL SUCCINATE [Concomitant]
     Active Substance: METOPROLOL SUCCINATE

REACTIONS (7)
  - Atrial fibrillation [Unknown]
  - Neoplasm [Unknown]
  - Constipation [Unknown]
  - Skin disorder [Unknown]
  - Ulcer [Unknown]
  - Blood potassium decreased [Unknown]
  - Blood magnesium decreased [Unknown]
